FAERS Safety Report 7411177-8 (Version None)
Quarter: 2011Q2

REPORT INFORMATION
  Report Type: 
  Country: None (occurrence: None)
  Receive Date: 20110405
  Receipt Date: 20110321
  Transmission Date: 20111010
  Serious: Yes (Other)
  Sender: FDA-Public Use
  Company Number: 2011AP000502

PATIENT
  Age: 68 Year

DRUGS (4)
  1. CALCIUM PHOSPHATE (CALCIUM PHOSPHATE) [Concomitant]
  2. CHOLECALCIFEROL (COLECALCIFEROL) [Concomitant]
  3. ALENDRONATE SODIUM [Suspect]
     Indication: OSTEOPOROSIS
     Dosage: 70 MG; QW PO
     Route: 048
     Dates: start: 20100917
  4. ALENDRONATE SODIUM [Suspect]
     Indication: OSTEOPOROSIS
     Dosage: 70 MG; QW PO
     Route: 048
     Dates: start: 20100917

REACTIONS (2)
  - EMOTIONAL DISTRESS [None]
  - ALOPECIA [None]
